FAERS Safety Report 22619816 (Version 1)
Quarter: 2023Q2

REPORT INFORMATION
  Report Type: Report from Study
  Country: CA (occurrence: CA)
  Receive Date: 20230620
  Receipt Date: 20230620
  Transmission Date: 20230721
  Serious: Yes (Other)
  Sender: FDA-Public Use
  Company Number: CA-BAUSCH-BL-2023-007533

PATIENT
  Sex: Female
  Weight: 92.063 kg

DRUGS (3)
  1. CONTRAVE [Suspect]
     Active Substance: BUPROPION HYDROCHLORIDE\NALTREXONE HYDROCHLORIDE
     Indication: Weight control
     Dosage: 90/8MG
     Route: 048
     Dates: start: 2023, end: 2023
  2. CONTRAVE [Suspect]
     Active Substance: BUPROPION HYDROCHLORIDE\NALTREXONE HYDROCHLORIDE
     Dosage: 90/8MG (2 DOSAGE FORMS,1 IN 12 HR)
     Route: 048
     Dates: start: 20230326, end: 202305
  3. ESTROGEN NOS;PROGESTERONE;TESTOSTERONE [Concomitant]
     Indication: Hormone replacement therapy
     Dosage: TESTOSTERONE/ ESTROGEN/ PROGESTERONE (COMPOUND)

REACTIONS (5)
  - Nausea [Recovered/Resolved]
  - Hunger [Recovered/Resolved]
  - Sinus disorder [Not Recovered/Not Resolved]
  - Gastroenteritis viral [Recovered/Resolved]
  - Headache [Not Recovered/Not Resolved]

NARRATIVE: CASE EVENT DATE: 20230101
